FAERS Safety Report 10644691 (Version 2)
Quarter: 2015Q1

REPORT INFORMATION
  Report Type: Spontaneous
  Country: US (occurrence: US)
  Receive Date: 20141211
  Receipt Date: 20150214
  Transmission Date: 20150720
  Serious: Yes (Hospitalization, Other)
  Sender: FDA-Public Use
  Company Number: US-JNJFOC-20141201152

PATIENT
  Age: 64 Year
  Sex: Male

DRUGS (23)
  1. MELOXICAM. [Suspect]
     Active Substance: MELOXICAM
     Indication: MUSCULOSKELETAL PAIN
     Dosage: AS NEEDED, ONLY TOOK TWICE AFTER HIS SURGERY
     Route: 048
  2. TRAZODONE [Concomitant]
     Active Substance: TRAZODONE HYDROCHLORIDE
     Indication: PRODUCT USED FOR UNKNOWN INDICATION
     Dosage: 100MG, HS, SINCE YEARS
     Route: 065
  3. HYDROCODONE [Concomitant]
     Active Substance: HYDROCODONE
     Indication: PRODUCT USED FOR UNKNOWN INDICATION
     Dosage: SINCE YEARS
     Route: 065
  4. SIMVASTATIN. [Concomitant]
     Active Substance: SIMVASTATIN
     Indication: PRODUCT USED FOR UNKNOWN INDICATION
     Dosage: 20MG, SINCE YEARS
     Route: 065
  5. OXYCODONE [Concomitant]
     Active Substance: OXYCODONE
     Indication: PRODUCT USED FOR UNKNOWN INDICATION
     Dosage: SINCE YEARS
     Route: 065
  6. VITAMIN D3 [Concomitant]
     Active Substance: CHOLECALCIFEROL
     Dosage: 2000IU, SINCE YEARS
     Route: 065
  7. IBUPROFEN. [Suspect]
     Active Substance: IBUPROFEN
     Indication: PAIN
     Dosage: EVERY OTHER DAY
     Route: 065
  8. ACETAMINOPHEN/ HYDROCODONE [Concomitant]
     Active Substance: ACETAMINOPHEN\HYDROCODONE BITARTRATE
     Indication: PRODUCT USED FOR UNKNOWN INDICATION
     Dosage: 5-325 UNSPECIFIED UNIT
     Route: 065
  9. ANDROGEL [Concomitant]
     Active Substance: TESTOSTERONE
     Indication: PRODUCT USED FOR UNKNOWN INDICATION
     Dosage: 50MG/5G SINCE YEARS
     Route: 065
  10. STOOL SOFTENER [Concomitant]
     Active Substance: DOCUSATE CALCIUM
     Indication: PRODUCT USED FOR UNKNOWN INDICATION
     Dosage: SINCE YEARS
     Route: 065
  11. IBUPROFEN. [Suspect]
     Active Substance: IBUPROFEN
     Indication: PAIN
     Dosage: TWICE A DAY ON MOST DAYS, FOR APPROXIMATELY 1 MONTH (MIGHT BE FOR 5 WEEKS)
     Route: 065
  12. KLONOPIN [Concomitant]
     Active Substance: CLONAZEPAM
     Indication: PRODUCT USED FOR UNKNOWN INDICATION
     Dosage: 1MG 2 TABLETS, HS, YEARS
     Route: 065
  13. BENICAR HCT [Concomitant]
     Active Substance: HYDROCHLOROTHIAZIDE\OLMESARTAN MEDOXOMIL
     Indication: PRODUCT USED FOR UNKNOWN INDICATION
     Dosage: 40/25 MG SINCE YEARS
     Route: 065
  14. LANSOPRAZOLE. [Concomitant]
     Active Substance: LANSOPRAZOLE
     Indication: PRODUCT USED FOR UNKNOWN INDICATION
     Dosage: 30MG, SINCE YEARS
     Route: 065
  15. MELOXICAM. [Suspect]
     Active Substance: MELOXICAM
     Indication: BACK PAIN
     Dosage: AS NEEDED, ONLY TOOK TWICE AFTER HIS SURGERY
     Route: 048
  16. DEXAMPHETAMINE SULPHATE [Concomitant]
     Dosage: 10MG, SINCE YEARS
     Route: 065
  17. FAMPRIDINE [Suspect]
     Active Substance: DALFAMPRIDINE
     Indication: GAIT DISTURBANCE
     Dosage: 10MG
     Route: 048
     Dates: start: 201406, end: 2014
  18. PRISTIQ EXTENDED RELEASE [Concomitant]
     Active Substance: DESVENLAFAXINE SUCCINATE
     Indication: PRODUCT USED FOR UNKNOWN INDICATION
     Dosage: 50MG, SINCE YEARS
     Route: 065
  19. AMLODIPINE [Concomitant]
     Active Substance: AMLODIPINE BESYLATE
     Indication: PRODUCT USED FOR UNKNOWN INDICATION
     Dosage: 10MG, IN THE EVENING SINCE YEARS
     Route: 065
  20. COPAXONE [Concomitant]
     Active Substance: GLATIRAMER ACETATE
     Dosage: 40MG, MONDAY, WEDNESDAY AND FRIDAY, YEARS
     Route: 065
  21. NAPROXEN. [Concomitant]
     Active Substance: NAPROXEN
     Indication: MUSCULOSKELETAL PAIN
     Route: 065
  22. FAMPRIDINE [Suspect]
     Active Substance: DALFAMPRIDINE
     Indication: GAIT DISTURBANCE
     Route: 048
     Dates: start: 2014
  23. TIZANIDINE HYDROCHLORIDE. [Suspect]
     Active Substance: TIZANIDINE HYDROCHLORIDE
     Indication: PRODUCT USED FOR UNKNOWN INDICATION
     Dosage: 2MG CAPSULE
     Route: 065

REACTIONS (7)
  - Hepatic steatosis [Recovered/Resolved]
  - Prostatomegaly [Recovered/Resolved]
  - Fall [Recovered/Resolved]
  - Angina pectoris [Recovered/Resolved]
  - Gait disturbance [Recovered/Resolved]
  - Acute kidney injury [Recovered/Resolved]
  - Gastrointestinal haemorrhage [Recovered/Resolved]

NARRATIVE: CASE EVENT DATE: 20141029
